FAERS Safety Report 8208340-5 (Version None)
Quarter: 2012Q1

REPORT INFORMATION
  Report Type: 
  Country: None (occurrence: None)
  Receive Date: 20120314
  Receipt Date: 20120312
  Transmission Date: 20120608
  Serious: Yes (Other)
  Sender: FDA-Public Use
  Company Number: PHEH2011US010763

PATIENT
  Age: 80 Year
  Sex: Female

DRUGS (3)
  1. RECLAST [Suspect]
     Dosage: UNK UKN, UNK
     Route: 042
  2. AGGRENOX [Concomitant]
     Dosage: UNK UKN, UNK
  3. VITAMINS NOS [Concomitant]
     Dosage: UNK UKN, UNK

REACTIONS (4)
  - PELVIC FRACTURE [None]
  - WRIST FRACTURE [None]
  - OSTEOPOROSIS [None]
  - FACIAL BONES FRACTURE [None]
